FAERS Safety Report 4774392-8 (Version None)
Quarter: 2005Q3

REPORT INFORMATION
  Report Type: 
  Country: None (occurrence: None)
  Receive Date: 20050919
  Receipt Date: 20050426
  Transmission Date: 20060218
  Serious: Yes (Hospitalization)
  Sender: FDA-Public Use
  Company Number: HQWYE459702MAY05

PATIENT
  Age: 36 Year
  Sex: Female
  Weight: 72.64 kg

DRUGS (4)
  1. ADVIL [Suspect]
     Indication: MIGRAINE
     Dosage: 1-2 LIQUI-GELS AS NEEDED, ORAL
     Route: 048
     Dates: start: 20010101, end: 20050301
  2. ALTACE [Concomitant]
  3. UNSPECIFIED ANTIHYPERLIPIDEMIC [Concomitant]
  4. NOVOLIN 70/30 [Concomitant]

REACTIONS (3)
  - ABDOMINAL PAIN UPPER [None]
  - GASTRITIS EROSIVE [None]
  - HAEMATEMESIS [None]
